FAERS Safety Report 10029737 (Version 1)
Quarter: 2014Q1

REPORT INFORMATION
  Report Type: Spontaneous
  Country: US (occurrence: None)
  Receive Date: 20140321
  Receipt Date: 20140321
  Transmission Date: 20141002
  Serious: Yes (Hospitalization)
  Sender: FDA-Public Use
  Company Number: None

PATIENT
  Age: 70 Year
  Sex: Male

DRUGS (4)
  1. ZYTIGA [Suspect]
     Route: 048
     Dates: start: 20131222
  2. FLOMAX [Concomitant]
  3. NEXIUM [Concomitant]
  4. NITROFURANTOIN MONO [Concomitant]

REACTIONS (1)
  - Urinary tract infection [None]
